FAERS Safety Report 16135761 (Version 1)
Quarter: 2019Q1

REPORT INFORMATION
  Report Type: Spontaneous
  Country: US (occurrence: US)
  Receive Date: 20190329
  Receipt Date: 20190329
  Transmission Date: 20190418
  Serious: Yes (Other)
  Sender: FDA-Public Use
  Company Number: US-PFIZER INC-2019129493

PATIENT
  Age: 57 Year
  Sex: Female
  Weight: 290 kg

DRUGS (1)
  1. XELJANZ XR [Suspect]
     Active Substance: TOFACITINIB CITRATE
     Indication: RHEUMATOID ARTHRITIS
     Dosage: 11 MG, DAILY
     Route: 048
     Dates: start: 20181031

REACTIONS (6)
  - Haematuria [Unknown]
  - Cellulitis [Unknown]
  - Peripheral swelling [Unknown]
  - Kidney infection [Unknown]
  - Rhinorrhoea [Recovering/Resolving]
  - Cystitis [Unknown]

NARRATIVE: CASE EVENT DATE: 201811
